FAERS Safety Report 4761425-8 (Version None)
Quarter: 2005Q3

REPORT INFORMATION
  Report Type: 
  Country: None (occurrence: None)
  Receive Date: 20050901
  Receipt Date: 20050901
  Transmission Date: 20060218
  Serious: Yes (Life-Threatening, Hospitalization)
  Sender: FDA-Public Use
  Company Number: None

PATIENT
  Age: 51 Year
  Sex: Male
  Weight: 73.0291 kg

DRUGS (7)
  1. ERBITUX [Suspect]
     Indication: LARYNGEAL CANCER
     Dosage: 250MG/M2 WEEKLY IV DRIP
     Route: 041
     Dates: start: 20050830, end: 20050830
  2. DECADRON [Concomitant]
  3. PEPCID [Concomitant]
  4. BENADRYL [Concomitant]
  5. TEGRETOL [Concomitant]
  6. ANTI-HYPERTENSIVE MEDICATIONS [Concomitant]
  7. DIURETIC [Concomitant]

REACTIONS (3)
  - ANAPHYLACTIC REACTION [None]
  - HYPOTENSION [None]
  - LOSS OF CONSCIOUSNESS [None]
